FAERS Safety Report 16904730 (Version 2)
Quarter: 2019Q4

REPORT INFORMATION
  Report Type: Spontaneous
  Country: US (occurrence: US)
  Receive Date: 20191010
  Receipt Date: 20191017
  Transmission Date: 20200122
  Serious: Yes (Life-Threatening, Hospitalization, Other)
  Sender: FDA-Public Use
  Company Number: US-PFIZER INC-2019430601

PATIENT
  Age: 55 Year
  Sex: Male

DRUGS (1)
  1. CEFAZOLIN [Suspect]
     Active Substance: CEFAZOLIN
     Indication: CIRCUMCISION
     Dosage: UNK

REACTIONS (9)
  - Acute kidney injury [Recovering/Resolving]
  - Retinal artery occlusion [Recovering/Resolving]
  - Cerebrovascular accident [Recovering/Resolving]
  - Antiphospholipid syndrome [Recovering/Resolving]
  - Product use in unapproved indication [Unknown]
  - Acute generalised exanthematous pustulosis [Recovering/Resolving]
  - Blindness unilateral [Recovering/Resolving]
  - Off label use [Unknown]
  - Acute myocardial infarction [Recovering/Resolving]
